FAERS Safety Report 13212499 (Version 2)
Quarter: 2017Q1

REPORT INFORMATION
  Report Type: Spontaneous
  Country: US (occurrence: US)
  Receive Date: 20170210
  Receipt Date: 20170324
  Transmission Date: 20170428
  Serious: No
  Sender: FDA-Public Use
  Company Number: US-ASTRAZENECA-2017SE11664

PATIENT
  Age: 64 Year
  Sex: Male
  Weight: 68.9 kg

DRUGS (2)
  1. CRESTOR [Suspect]
     Active Substance: ROSUVASTATIN CALCIUM
     Indication: BLOOD CHOLESTEROL INCREASED
     Dosage: DAILY
     Route: 048
     Dates: start: 2008, end: 201607
  2. BYSTOLIC [Concomitant]
     Active Substance: NEBIVOLOL HYDROCHLORIDE
     Indication: HYPERTENSION
     Route: 048
     Dates: start: 2008

REACTIONS (14)
  - Weight decreased [Recovering/Resolving]
  - Abdominal distension [Recovered/Resolved]
  - Musculoskeletal discomfort [Recovering/Resolving]
  - Pain in extremity [Recovered/Resolved]
  - Chromaturia [Recovered/Resolved]
  - Muscle spasms [Recovered/Resolved]
  - Muscle atrophy [Recovering/Resolving]
  - Rhinitis allergic [Recovering/Resolving]
  - Decreased appetite [Not Recovered/Not Resolved]
  - Pain in extremity [Recovered/Resolved]
  - Seborrhoeic keratosis [Unknown]
  - Muscular weakness [Recovering/Resolving]
  - Abdominal pain [Unknown]
  - Insomnia [Unknown]

NARRATIVE: CASE EVENT DATE: 2008
